FAERS Safety Report 23809931 (Version 1)
Quarter: 2024Q2

REPORT INFORMATION
  Report Type: Spontaneous
  Country: DE (occurrence: None)
  Receive Date: 20240502
  Receipt Date: 20240502
  Transmission Date: 20240716
  Serious: Yes (Other)
  Sender: FDA-Public Use
  Company Number: 2024A098342

PATIENT
  Age: 67 Year
  Sex: Female

DRUGS (1)
  1. DURVALUMAB [Suspect]
     Active Substance: DURVALUMAB
     Indication: Non-small cell lung cancer stage III
     Dosage: EVERY 2 WEEKS
     Dates: start: 202201

REACTIONS (2)
  - Metastases to adrenals [Unknown]
  - Addison^s disease [Unknown]

NARRATIVE: CASE EVENT DATE: 20220801
